FAERS Safety Report 14946360 (Version 1)
Quarter: 2018Q2

REPORT INFORMATION
  Report Type: Spontaneous
  Country: US (occurrence: US)
  Receive Date: 20180508
  Receipt Date: 20180508
  Transmission Date: 20180711
  Serious: Yes (Hospitalization)
  Sender: FDA-Public Use
  Company Number: None

PATIENT
  Age: 23 Year
  Sex: Female

DRUGS (1)
  1. HUMIRA [Suspect]
     Active Substance: ADALIMUMAB
     Indication: CROHN^S DISEASE
     Route: 058
     Dates: start: 20180214

REACTIONS (7)
  - Pyrexia [None]
  - Condition aggravated [None]
  - Colonic abscess [None]
  - Weight decreased [None]
  - Abdominal pain upper [None]
  - Large intestine perforation [None]
  - Drug effect decreased [None]
